FAERS Safety Report 5127759-2 (Version None)
Quarter: 2006Q4

REPORT INFORMATION
  Report Type: 
  Country: None (occurrence: None)
  Receive Date: 20061016
  Receipt Date: 20060921
  Transmission Date: 20070319
  Serious: Yes (Disabling, Other)
  Sender: FDA-Public Use
  Company Number: GB-GLAXOSMITHKLINE-B0439341A

PATIENT
  Age: 56 Year
  Sex: Female

DRUGS (3)
  1. NIQUITIN CQ CLEAR 21MG [Suspect]
     Dosage: 21MG PER DAY
     Route: 062
  2. NIQUITIN CQ 14MG [Suspect]
     Dosage: 14MG PER DAY
     Route: 062
  3. TRAZODONE HCL [Concomitant]

REACTIONS (2)
  - APPLICATION SITE PRURITUS [None]
  - ARTHRITIS [None]
